FAERS Safety Report 5863826-3 (Version None)
Quarter: 2008Q3

REPORT INFORMATION
  Report Type: 
  Country: None (occurrence: None)
  Receive Date: 20080827
  Receipt Date: 20080815
  Transmission Date: 20090109
  Serious: No
  Sender: FDA-Public Use
  Company Number: US024392

PATIENT
  Age: 62 Year
  Sex: Male
  Weight: 90.7194 kg

DRUGS (11)
  1. FENTORA [Suspect]
     Indication: NEUROPATHY PERIPHERAL
     Dosage: 400 UG QID BUCCAL
     Route: 002
     Dates: start: 20070701
  2. OPANA [Concomitant]
  3. LASIX [Concomitant]
  4. NEXIUM [Concomitant]
  5. ATENOLOL [Concomitant]
  6. GABAPENTIN [Concomitant]
  7. PROVIGIL [Concomitant]
  8. ALLOPURINOL [Concomitant]
  9. NIASPAN [Concomitant]
  10. SENNA PLUS [Concomitant]
  11. DOCUSATE SODIUM [Concomitant]

REACTIONS (5)
  - CONDITION AGGRAVATED [None]
  - DRUG EFFECT DECREASED [None]
  - INCORRECT ROUTE OF DRUG ADMINISTRATION [None]
  - MEDICATION ERROR [None]
  - STOMATITIS [None]
